FAERS Safety Report 7450263-3 (Version None)
Quarter: 2011Q2

REPORT INFORMATION
  Report Type: 
  Country: None (occurrence: None)
  Receive Date: 20110428
  Receipt Date: 20110428
  Transmission Date: 20111010
  Serious: Yes (Other)
  Sender: FDA-Public Use
  Company Number: None

PATIENT
  Age: 73 Year
  Sex: Male
  Weight: 92.9874 kg

DRUGS (1)
  1. AMARYL [Suspect]
     Indication: TYPE 2 DIABETES MELLITUS
     Dosage: I DAILY PO
     Route: 048
     Dates: start: 20101221, end: 20110306

REACTIONS (3)
  - RASH PRURITIC [None]
  - RASH PAPULAR [None]
  - SKIN ULCER [None]
